FAERS Safety Report 8542195-4 (Version None)
Quarter: 2012Q3

REPORT INFORMATION
  Report Type: 
  Country: None (occurrence: None)
  Receive Date: 20120726
  Receipt Date: 20111005
  Transmission Date: 20120928
  Serious: No
  Sender: FDA-Public Use
  Company Number: US-ASTRAZENECA-2011SE59826

PATIENT
  Age: 12023 Day
  Sex: Female
  Weight: 74.8 kg

DRUGS (3)
  1. SEROQUEL [Suspect]
     Indication: DEPRESSION
     Route: 048
     Dates: start: 20110913
  2. CELEXA [Concomitant]
  3. IBUPROFEN [Concomitant]
     Indication: HEADACHE

REACTIONS (6)
  - DYSPHONIA [None]
  - STRESS [None]
  - COUGH [None]
  - NASOPHARYNGITIS [None]
  - MALAISE [None]
  - CHEST DISCOMFORT [None]
